FAERS Safety Report 9651134 (Version 2)
Quarter: 2013Q4

REPORT INFORMATION
  Report Type: Report from Study
  Country: DE (occurrence: DE)
  Receive Date: 20131029
  Receipt Date: 20131118
  Transmission Date: 20140711
  Serious: Yes (Hospitalization)
  Sender: FDA-Public Use
  Company Number: DE-B.I. PHARMACEUTICALS,INC./RIDGEFIELD-2013-BI-33678DE

PATIENT
  Sex: Female
  Weight: 40 kg

DRUGS (2)
  1. VIRAMUNE [Suspect]
     Dosage: 1 ANZ
     Route: 048
  2. KIVEXA [Suspect]
     Dosage: 1 ANZ
     Route: 048

REACTIONS (5)
  - Condition aggravated [Unknown]
  - Headache [Unknown]
  - Dizziness [Unknown]
  - Nausea [Unknown]
  - Vomiting [Unknown]
